FAERS Safety Report 15729577 (Version 2)
Quarter: 2019Q1

REPORT INFORMATION
  Report Type: Spontaneous
  Country: US (occurrence: US)
  Receive Date: 20181217
  Receipt Date: 20190110
  Transmission Date: 20190417
  Serious: No
  Sender: FDA-Public Use
  Company Number: US-GLAXOSMITHKLINE-US2018224276

PATIENT
  Sex: Male
  Weight: 108.84 kg

DRUGS (1)
  1. NUCALA [Suspect]
     Active Substance: MEPOLIZUMAB
     Indication: PRODUCT USED FOR UNKNOWN INDICATION
     Dosage: UNK
     Route: 058
     Dates: start: 20181025, end: 20181025

REACTIONS (5)
  - Rash [Unknown]
  - Urticaria [Unknown]
  - Decreased appetite [Unknown]
  - Weight decreased [Unknown]
  - Prostatic pain [Recovered/Resolved]
